FAERS Safety Report 8486336 (Version 2)
Quarter: 2013Q2

REPORT INFORMATION
  Report Type: Spontaneous
  Country: US (occurrence: None)
  Receive Date: 20120312
  Receipt Date: 20120607
  Transmission Date: 20140414
  Serious: Yes (Hospitalization, Other)
  Sender: FDA-Public Use
  Company Number: 2012SP005288

PATIENT
  Sex: Female

DRUGS (1)
  1. SAPHRIS [Suspect]
     Indication: ANXIETY
     Dosage: SL
     Route: 060

REACTIONS (3)
  - DYSTONIA [None]
  - Underdose [None]
  - Off label use [None]
